FAERS Safety Report 8827233 (Version 2)
Quarter: 2013Q4

REPORT INFORMATION
  Report Type: Report from Study
  Country: JP (occurrence: JP)
  Receive Date: 20121008
  Receipt Date: 20131106
  Transmission Date: 20140711
  Serious: Yes (Hospitalization, Other)
  Sender: FDA-Public Use
  Company Number: JP-009507513-1010USA03233

PATIENT
  Age: 90 Year
  Sex: Female

DRUGS (8)
  1. GLACTIV [Suspect]
     Indication: TYPE 2 DIABETES MELLITUS
     Dosage: 50 MG, QD
     Route: 048
     Dates: start: 20100917, end: 20100928
  2. AMARYL [Suspect]
     Indication: TYPE 2 DIABETES MELLITUS
     Dosage: 3 MG, QD
     Route: 048
     Dates: end: 20100928
  3. ACTOS [Suspect]
     Indication: TYPE 2 DIABETES MELLITUS
     Dosage: 30 MG, QD
     Route: 048
     Dates: end: 20100928
  4. MELBIN [Suspect]
     Indication: TYPE 2 DIABETES MELLITUS
     Dosage: 250 MG, QD
     Route: 048
     Dates: end: 20100928
  5. LIPITOR [Concomitant]
     Dosage: UNK
     Dates: end: 20100928
  6. EC DOPARL [Concomitant]
     Dosage: UNK
     Dates: end: 20100928
  7. LASIX (FUROSEMIDE) [Concomitant]
     Dosage: UNK
     Dates: end: 20100928
  8. BAYMYCARD [Concomitant]
     Dosage: UNK
     Dates: end: 20100928

REACTIONS (2)
  - Hypoglycaemia [Recovered/Resolved]
  - Hypoglycaemic unconsciousness [Recovered/Resolved with Sequelae]
